FAERS Safety Report 6866721-6 (Version None)
Quarter: 2010Q2

REPORT INFORMATION
  Report Type: 
  Country: None (occurrence: None)
  Receive Date: 20100604
  Receipt Date: 20090615
  Transmission Date: 20101027
  Serious: Yes (Other)
  Sender: FDA-Public Use
  Company Number: APP200900332

PATIENT
  Age: 50 Year
  Sex: Male
  Weight: 86.4 kg

DRUGS (2)
  1. PROTAMINE SULFATE [Suspect]
     Indication: HEPARIN NEUTRALISATION THERAPY
     Dosage: 40 MG, ONCE, INTRAVENOUS
     Route: 042
     Dates: start: 20090606, end: 20090606
  2. HEPARIN SODIUM INJECTION [Concomitant]

REACTIONS (2)
  - BRADYCARDIA [None]
  - HYPOTENSION [None]
